FAERS Safety Report 15692898 (Version 2)
Quarter: 2018Q4

REPORT INFORMATION
  Report Type: Report from Study
  Country: US (occurrence: US)
  Receive Date: 20181206
  Receipt Date: 20181221
  Transmission Date: 20190205
  Serious: Yes (Other)
  Sender: FDA-Public Use
  Company Number: US-TEVA-2018-US-983312

PATIENT
  Age: 57 Year
  Sex: Male

DRUGS (12)
  1. PERPHENAZINE. [Suspect]
     Active Substance: PERPHENAZINE
     Indication: DEMENTIA
  2. CLONIDINE. [Suspect]
     Active Substance: CLONIDINE
     Indication: SCHIZOAFFECTIVE DISORDER
     Route: 065
  3. CLONIDINE. [Suspect]
     Active Substance: CLONIDINE
     Indication: DEMENTIA
  4. VALPROIC ACID. [Suspect]
     Active Substance: VALPROIC ACID
     Indication: DEMENTIA
  5. VALPROIC ACID. [Suspect]
     Active Substance: VALPROIC ACID
     Indication: SCHIZOAFFECTIVE DISORDER
     Route: 065
  6. PERPHENAZINE. [Suspect]
     Active Substance: PERPHENAZINE
     Indication: SCHIZOAFFECTIVE DISORDER
     Dosage: 8 MILLIGRAM DAILY; ONCE AT NIGHT
     Route: 065
  7. QUETIAPINE. [Suspect]
     Active Substance: QUETIAPINE
     Indication: SCHIZOAFFECTIVE DISORDER
     Dosage: 8 MILLIGRAM DAILY; AT NIGHT
     Route: 065
  8. DEXTROMETHORPHAN/QUINIDINE [Suspect]
     Active Substance: DEXTROMETHORPHAN HYDROBROMIDE\QUINIDINE SULFATE
     Indication: DEMENTIA
     Dosage: DEXTROMETHORPHAN20 MG AND QUINIDINE 10 MG
     Route: 065
  9. OLANZAPINE. [Suspect]
     Active Substance: OLANZAPINE
     Indication: DEMENTIA
  10. QUETIAPINE. [Suspect]
     Active Substance: QUETIAPINE
     Indication: DEMENTIA
  11. OLANZAPINE. [Suspect]
     Active Substance: OLANZAPINE
     Indication: SCHIZOAFFECTIVE DISORDER
     Dosage: 20 MILLIGRAM DAILY; ONCE AT NIGHT
     Route: 065
  12. DEXTROMETHORPHAN/QUINIDINE [Suspect]
     Active Substance: DEXTROMETHORPHAN HYDROBROMIDE\QUINIDINE SULFATE
     Indication: SCHIZOAFFECTIVE DISORDER
     Dosage: DEXTROMETHORPHAN20 MG AND QUINIDINE 10 MG
     Route: 065

REACTIONS (2)
  - Drug ineffective [Unknown]
  - Aggression [Not Recovered/Not Resolved]
